FAERS Safety Report 4441898-0 (Version None)
Quarter: 2004Q3

REPORT INFORMATION
  Report Type: 
  Country: None (occurrence: None)
  Receive Date: 20040901
  Receipt Date: 20030417
  Transmission Date: 20050211
  Serious: Yes (Hospitalization)
  Sender: FDA-Public Use
  Company Number: 2004230152CA

PATIENT
  Age: 45 Year
  Sex: Female

DRUGS (4)
  1. ZYVOX [Suspect]
     Indication: STAPHYLOCOCCAL INFECTION
     Dosage: 600 MG, BID, IV
     Route: 042
     Dates: start: 20011218
  2. LEVOFLOXACIN [Concomitant]
  3. VANCOMYCIN SOLUTION, STERILE [Concomitant]
  4. CIPROFLOXACIN SOLUTION, STERILE [Concomitant]

REACTIONS (1)
  - OSTEOMYELITIS CHRONIC [None]
